FAERS Safety Report 8543048-8 (Version None)
Quarter: 2012Q3

REPORT INFORMATION
  Report Type: 
  Country: None (occurrence: None)
  Receive Date: 20120727
  Receipt Date: 20120718
  Transmission Date: 20120928
  Serious: Yes (Other)
  Sender: FDA-Public Use
  Company Number: US-JNJFOC-20120710587

PATIENT

DRUGS (4)
  1. REMICADE [Suspect]
     Indication: CROHN'S DISEASE
     Route: 042
  2. BENADRYL [Concomitant]
     Indication: PREMEDICATION
     Route: 048
  3. REMICADE [Suspect]
     Dosage: SECOND INFUSION
     Route: 042
     Dates: start: 20120711
  4. TYLENOL [Concomitant]
     Indication: PREMEDICATION
     Route: 048

REACTIONS (3)
  - FLUSHING [None]
  - OXYGEN SATURATION DECREASED [None]
  - DYSPNOEA [None]
